FAERS Safety Report 21079622 (Version 1)
Quarter: 2022Q3

REPORT INFORMATION
  Report Type: Spontaneous
  Country: US (occurrence: US)
  Receive Date: 20220714
  Receipt Date: 20220714
  Transmission Date: 20221026
  Serious: No
  Sender: FDA-Public Use
  Company Number: US-PRINSTON PHARMACEUTICAL INC.-2021PRN00318

PATIENT
  Age: 66 Year
  Sex: Female
  Weight: 77.11 kg

DRUGS (3)
  1. LISINOPRIL [Suspect]
     Active Substance: LISINOPRIL
     Indication: Blood pressure abnormal
     Dosage: 2.5 MG, 1X/DAY
     Dates: start: 202011, end: 20210822
  2. PFIZER-BIONTECH COVID-19 VACCINE [Suspect]
     Active Substance: TOZINAMERAN
     Indication: Immunisation
     Dosage: UNK, TO THE LEFT ARM
     Dates: start: 20210812, end: 20210812
  3. CARVEDILOL [Suspect]
     Active Substance: CARVEDILOL
     Indication: Blood pressure abnormal
     Dosage: 20 MG, 2X/DAY
     Dates: start: 202011

REACTIONS (10)
  - COVID-19 [Unknown]
  - Dysentery [Unknown]
  - Ocular discomfort [Recovering/Resolving]
  - Fear [Unknown]
  - Blood pressure increased [Recovered/Resolved]
  - Drug ineffective [Recovered/Resolved]
  - Swelling of eyelid [Recovering/Resolving]
  - Eye swelling [Recovering/Resolving]
  - Swelling face [Recovering/Resolving]
  - Swelling [Recovering/Resolving]

NARRATIVE: CASE EVENT DATE: 20210812
